FAERS Safety Report 16417907 (Version 9)
Quarter: 2020Q1

REPORT INFORMATION
  Report Type: Report from Study
  Country: US (occurrence: US)
  Receive Date: 20190611
  Receipt Date: 20200214
  Transmission Date: 20200409
  Serious: Yes (Death, Hospitalization)
  Sender: FDA-Public Use
  Company Number: PHEH2019US023922

PATIENT
  Age: 63 Year
  Sex: Female

DRUGS (2)
  1. TREPROSTINIL. [Suspect]
     Active Substance: TREPROSTINIL
     Indication: PULMONARY ARTERIAL HYPERTENSION
     Dosage: 40NG/KG/MIN, CONT
     Route: 042
     Dates: start: 20190507
  2. TREPROSTINIL. [Suspect]
     Active Substance: TREPROSTINIL
     Dosage: 40NG/KG/MIN, CONT
     Route: 042
     Dates: start: 20190628

REACTIONS (8)
  - Infection [Fatal]
  - Condition aggravated [Fatal]
  - Back pain [Unknown]
  - Thrombosis [Unknown]
  - Pneumonia [Unknown]
  - Asthenia [Not Recovered/Not Resolved]
  - Fall [Unknown]
  - Pulmonary arterial hypertension [Fatal]

NARRATIVE: CASE EVENT DATE: 201908
